FAERS Safety Report 11523769 (Version 1)
Quarter: 2015Q3

REPORT INFORMATION
  Report Type: Spontaneous
  Country: US (occurrence: US)
  Receive Date: 20150903
  Receipt Date: 20150903
  Transmission Date: 20151125
  Serious: Yes (Life-Threatening)
  Sender: FDA-Public Use
  Company Number: US-ELI_LILLY_AND_COMPANY-US201304002813

PATIENT
  Age: 72 Year
  Sex: Female

DRUGS (5)
  1. ECHINACEA                          /01323501/ [Concomitant]
     Dosage: UNK, UNKNOWN
  2. BETA CAROTENE [Concomitant]
     Dosage: UNK, UNKNOWN
  3. CYMBALTA [Suspect]
     Active Substance: DULOXETINE HYDROCHLORIDE
     Indication: DEPRESSION
     Dosage: 30 MG, QD
     Dates: start: 201006
  4. COQ10 [Concomitant]
     Active Substance: UBIDECARENONE
     Dosage: UNK, UNKNOWN
  5. TRIAMTERENE. [Concomitant]
     Active Substance: TRIAMTERENE
     Dosage: UNK, UNKNOWN

REACTIONS (1)
  - Hyponatraemia [Not Recovered/Not Resolved]

NARRATIVE: CASE EVENT DATE: 20130409
